FAERS Safety Report 9909663 (Version 1)
Quarter: 2014Q1

REPORT INFORMATION
  Report Type: Spontaneous
  Country: IT (occurrence: IT)
  Receive Date: 20140219
  Receipt Date: 20140219
  Transmission Date: 20141002
  Serious: Yes (Other)
  Sender: FDA-Public Use
  Company Number: IT-GLAXOSMITHKLINE-B0970806A

PATIENT
  Age: 67 Year
  Sex: 0

DRUGS (1)
  1. VOTRIENT [Suspect]
     Indication: NEOPLASM MALIGNANT
     Dosage: 800MG PER DAY
     Route: 048
     Dates: start: 20110101, end: 20140214

REACTIONS (1)
  - Osteonecrosis of jaw [Recovered/Resolved]
